FAERS Safety Report 25353784 (Version 1)
Quarter: 2025Q2

REPORT INFORMATION
  Report Type: Spontaneous
  Country: US (occurrence: US)
  Receive Date: 20250523
  Receipt Date: 20250523
  Transmission Date: 20250717
  Serious: Yes (Hospitalization, Other)
  Sender: ALEMBIC
  Company Number: US-ALEMBIC PHARMACUETICALS LIMITED-2025SCAL000506

PATIENT

DRUGS (6)
  1. PACLITAXEL [Suspect]
     Active Substance: PACLITAXEL
     Indication: Uterine cancer
     Route: 065
  2. PACLITAXEL [Suspect]
     Active Substance: PACLITAXEL
     Indication: Metastases to peritoneum
  3. CARBOPLATIN [Suspect]
     Active Substance: CARBOPLATIN
     Indication: Uterine cancer
     Route: 065
  4. CARBOPLATIN [Suspect]
     Active Substance: CARBOPLATIN
     Indication: Metastases to peritoneum
  5. DOSTARLIMAB [Suspect]
     Active Substance: DOSTARLIMAB
     Indication: Uterine cancer
     Route: 065
  6. DOSTARLIMAB [Suspect]
     Active Substance: DOSTARLIMAB
     Indication: Metastases to peritoneum

REACTIONS (9)
  - Autoimmune haemolytic anaemia [Recovering/Resolving]
  - Anaemia [Recovering/Resolving]
  - Haptoglobin decreased [Unknown]
  - Hypothyroidism [Unknown]
  - Hepatotoxicity [Unknown]
  - Liver function test increased [Unknown]
  - Hypertransaminasaemia [Recovering/Resolving]
  - Blood lactate dehydrogenase increased [Unknown]
  - Blood creatinine increased [Recovering/Resolving]
